FAERS Safety Report 5885664-8 (Version None)
Quarter: 2008Q3

REPORT INFORMATION
  Report Type: 
  Country: None (occurrence: None)
  Receive Date: 20080912
  Receipt Date: 20080830
  Transmission Date: 20090109
  Serious: Yes (Disabling, Other)
  Sender: FDA-Public Use
  Company Number: 2007S1008546

PATIENT
  Age: 9 Year
  Sex: Male

DRUGS (10)
  1. MERCAPTAMINE BITARTRATE (MERCAPTAMINE BITARTRATE) [Suspect]
     Indication: CYSTINOSIS
     Dosage: DAILY;ORAL  19.4 MG/KG;DAILY;ORAL  36 MG/KG;DAILY;ORAL  400 MG;DAILY;ORAL
     Route: 048
     Dates: end: 20070101
  2. MERCAPTAMINE BITARTRATE (MERCAPTAMINE BITARTRATE) [Suspect]
     Indication: CYSTINOSIS
     Dosage: DAILY;ORAL  19.4 MG/KG;DAILY;ORAL  36 MG/KG;DAILY;ORAL  400 MG;DAILY;ORAL
     Route: 048
     Dates: start: 19980801
  3. MERCAPTAMINE BITARTRATE (MERCAPTAMINE BITARTRATE) [Suspect]
     Indication: CYSTINOSIS
     Dosage: DAILY;ORAL  19.4 MG/KG;DAILY;ORAL  36 MG/KG;DAILY;ORAL  400 MG;DAILY;ORAL
     Route: 048
     Dates: start: 20070901
  4. ERYTHROPRETIN [Concomitant]
  5. PHOSPHATE /01684601/ [Concomitant]
  6. SODIUM BICARBONATE [Concomitant]
  7. HGH [Concomitant]
  8. INDOMETHACIN [Concomitant]
  9. ALFACALCIDOL [Concomitant]
  10. L-CARNITINE [Concomitant]

REACTIONS (8)
  - ARTHRALGIA [None]
  - BLOOD CREATININE INCREASED [None]
  - BLOOD UREA INCREASED [None]
  - HAEMOGLOBIN DECREASED [None]
  - IMPETIGO [None]
  - JOINT STIFFNESS [None]
  - LABORATORY TEST ABNORMAL [None]
  - MULTIPLE EPIPHYSEAL DYSPLASIA [None]
